FAERS Safety Report 17150499 (Version 1)
Quarter: 2019Q4

REPORT INFORMATION
  Report Type: Spontaneous
  Country: US (occurrence: US)
  Receive Date: 20191213
  Receipt Date: 20191213
  Transmission Date: 20200122
  Serious: No
  Sender: FDA-Public Use
  Company Number: US-UCBSA-2015032230

PATIENT
  Age: 49 Year
  Sex: Female
  Weight: 52.16 kg

DRUGS (5)
  1. VIMPAT [Suspect]
     Active Substance: LACOSAMIDE
     Indication: SEIZURE
     Dosage: 150 MG, 2X/DAY (BID)
     Route: 048
     Dates: start: 201501
  2. ZONISAMIDE. [Concomitant]
     Active Substance: ZONISAMIDE
     Indication: SEIZURE
     Dosage: 25 MG, 2X/DAY (BID)
     Route: 048
     Dates: start: 20150625
  3. AMITRIPTYLINE [Concomitant]
     Active Substance: AMITRIPTYLINE
     Indication: DEPRESSION
     Dosage: 25 MG, 2X/DAY (BID)
     Route: 048
     Dates: start: 20150712
  4. ALPRAZOLAM. [Concomitant]
     Active Substance: ALPRAZOLAM
     Indication: ANXIETY
     Dosage: 1 MG, ONCE DAILY (QD)
     Route: 048
     Dates: start: 20150712
  5. PHENYTOIN. [Concomitant]
     Active Substance: PHENYTOIN
     Indication: SEIZURE
     Dosage: 100 MG, ONCE DAILY (QD)
     Route: 048
     Dates: start: 20150622

REACTIONS (5)
  - Influenza like illness [Recovered/Resolved]
  - Burning sensation [Recovered/Resolved]
  - Toothache [Recovered/Resolved]
  - Headache [Recovered/Resolved]
  - Pain in jaw [Recovered/Resolved]

NARRATIVE: CASE EVENT DATE: 20150928
